FAERS Safety Report 14363729 (Version 1)
Quarter: 2018Q1

REPORT INFORMATION
  Report Type: Spontaneous
  Country: US (occurrence: US)
  Receive Date: 20180105
  Receipt Date: 20180105
  Transmission Date: 20180509
  Serious: No
  Sender: FDA-Public Use
  Company Number: None

PATIENT
  Age: 25 Year
  Sex: Female
  Weight: 112.3 kg

DRUGS (1)
  1. OLD SPICE HIGH ENDURANCE PURE SPORT (ALUMINUM ZIRCONIUM TRICHLOROHYDREX GLY) [Suspect]
     Active Substance: ALUMINUM ZIRCONIUM TRICHLOROHYDREX GLY
     Dosage: ENOUGH TO COVER ENTIRE ARMPIT, ONCE OR TWICE DAILY
     Route: 061
     Dates: start: 20170520, end: 20170625

REACTIONS (19)
  - Rash [None]
  - Dermatitis contact [None]
  - Application site burn [None]
  - Product quality issue [None]
  - Contusion [None]
  - Erythema [None]
  - Dermatitis [None]
  - Pain of skin [None]
  - Skin exfoliation [None]
  - Skin lesion [None]
  - Feeling abnormal [None]
  - Pruritus [None]
  - First degree chemical burn of skin [None]
  - Skin discolouration [None]
  - Skin abrasion [None]
  - Skin wound [None]
  - Skin irritation [None]
  - Skin burning sensation [None]
  - Blister [None]

NARRATIVE: CASE EVENT DATE: 20170625
